FAERS Safety Report 6120517-1 (Version None)
Quarter: 2009Q1

REPORT INFORMATION
  Report Type: 
  Country: None (occurrence: None)
  Receive Date: 20090317
  Receipt Date: 20090306
  Transmission Date: 20090719
  Serious: Yes (Life-Threatening, Hospitalization)
  Sender: FDA-Public Use
  Company Number: FR-BAYER-200915495GPV

PATIENT
  Age: 40 Year
  Sex: Male

DRUGS (9)
  1. CIFLOX [Suspect]
     Indication: INFECTION PROPHYLAXIS
     Route: 048
     Dates: start: 20080929, end: 20081017
  2. PYOSTACINE [Suspect]
     Indication: INFECTION PROPHYLAXIS
     Route: 048
     Dates: start: 20080929, end: 20081017
  3. MOPRAL [Suspect]
     Indication: DRUG USE FOR UNKNOWN INDICATION
     Route: 048
     Dates: start: 20081009, end: 20081020
  4. ZYLORIC [Suspect]
     Indication: DRUG USE FOR UNKNOWN INDICATION
     Route: 048
  5. ZYLORIC [Suspect]
     Route: 048
  6. METHOTREXATE [Concomitant]
     Indication: ACUTE LYMPHOCYTIC LEUKAEMIA
     Route: 042
     Dates: start: 20081009, end: 20081009
  7. VINCRISTINE [Concomitant]
     Indication: ACUTE LYMPHOCYTIC LEUKAEMIA
     Route: 042
     Dates: start: 20081009, end: 20081009
  8. KIDROLASE [Concomitant]
     Indication: ACUTE LYMPHOCYTIC LEUKAEMIA
     Route: 042
     Dates: start: 20081009, end: 20081009
  9. CALCIUM FOLINATE [Concomitant]
     Indication: DRUG USE FOR UNKNOWN INDICATION
     Route: 042
     Dates: start: 20081009, end: 20081009

REACTIONS (10)
  - ANAL INFLAMMATION [None]
  - CONJUNCTIVAL OEDEMA [None]
  - DERMATITIS BULLOUS [None]
  - LOCALISED OEDEMA [None]
  - ORAL DISORDER [None]
  - RASH MACULO-PAPULAR [None]
  - RASH PUSTULAR [None]
  - SHOCK [None]
  - STEVENS-JOHNSON SYNDROME [None]
  - TOXIC SKIN ERUPTION [None]
